FAERS Safety Report 4383775-X (Version None)
Quarter: 2004Q2

REPORT INFORMATION
  Report Type: 
  Country: None (occurrence: None)
  Receive Date: 20040623
  Receipt Date: 20040130
  Transmission Date: 20050107
  Serious: Yes (Hospitalization, Disabling, Other)
  Sender: FDA-Public Use
  Company Number: US-MERCK-0402USA00068

PATIENT
  Age: 50 Year
  Sex: Male
  Weight: 84 kg

DRUGS (10)
  1. PERCOCET [Concomitant]
     Indication: PAIN
     Route: 065
     Dates: start: 20010101
  2. ATENOLOL [Concomitant]
     Indication: HYPERTENSION
     Route: 065
     Dates: start: 20001201
  3. FOLIC ACID [Concomitant]
     Indication: ARTHRITIS
     Route: 065
  4. ISMO [Concomitant]
     Route: 065
  5. METHOTREXATE [Concomitant]
     Indication: RHEUMATOID ARTHRITIS
     Route: 065
     Dates: start: 19930101
  6. OXYCODONE HYDROCHLORIDE [Concomitant]
     Route: 065
  7. PREDNISONE [Concomitant]
     Route: 048
  8. VIOXX [Suspect]
     Indication: RHEUMATOID ARTHRITIS
     Route: 048
     Dates: start: 19990101, end: 20020412
  9. ZOCOR [Suspect]
     Route: 048
     Dates: start: 20010115
  10. AMBIEN [Concomitant]
     Route: 065

REACTIONS (14)
  - ANGINA PECTORIS [None]
  - ATRIAL FIBRILLATION [None]
  - BLOOD CHOLESTEROL INCREASED [None]
  - BRADYCARDIA [None]
  - CORONARY ARTERY DISEASE [None]
  - CORONARY ARTERY REOCCLUSION [None]
  - DEEP VEIN THROMBOSIS [None]
  - DIVERTICULITIS INTESTINAL HAEMORRHAGIC [None]
  - HYPERLIPIDAEMIA [None]
  - HYPERTENSION [None]
  - INTERVERTEBRAL DISC DEGENERATION [None]
  - MYOCARDIAL INFARCTION [None]
  - RENAL FAILURE CHRONIC [None]
  - RESPIRATORY DISTRESS [None]
